FAERS Safety Report 8033086-6 (Version None)
Quarter: 2011Q4

REPORT INFORMATION
  Report Type: 
  Country: None (occurrence: None)
  Receive Date: 20111228
  Receipt Date: 20111213
  Transmission Date: 20120403
  Serious: Yes (Other)
  Sender: FDA-Public Use
  Company Number: 2011SP058262

PATIENT
  Sex: Female

DRUGS (5)
  1. PEG-INTRON [Suspect]
     Indication: HEPATITIS C
     Dates: start: 20020104, end: 20031205
  2. PEG-INTRON [Suspect]
     Indication: HEPATITIS C
     Dates: start: 20050107, end: 20050401
  3. OXYCONTIN [Concomitant]
  4. RIBAVIRIN [Suspect]
     Indication: HEPATITIS C
     Dates: start: 20050107, end: 20050401
  5. RIBAVIRIN [Suspect]
     Indication: HEPATITIS C
     Dates: start: 20020104, end: 20031205

REACTIONS (11)
  - GOUT [None]
  - RECTAL POLYP [None]
  - BONE PAIN [None]
  - DEPRESSION [None]
  - DEHYDRATION [None]
  - ALOPECIA [None]
  - FLUSHING [None]
  - WEIGHT DECREASED [None]
  - ANXIETY [None]
  - GAIT DISTURBANCE [None]
  - VOMITING [None]
